FAERS Safety Report 26133734 (Version 1)
Quarter: 2025Q4

REPORT INFORMATION
  Report Type: Report from Study
  Country: US (occurrence: US)
  Receive Date: 20251209
  Receipt Date: 20251209
  Transmission Date: 20260118
  Serious: Yes (Other)
  Sender: ABBVIE
  Company Number: US-ABBVIE-6578822

PATIENT
  Sex: Male

DRUGS (1)
  1. HUMIRA [Suspect]
     Active Substance: ADALIMUMAB
     Indication: Product used for unknown indication
     Route: 058

REACTIONS (5)
  - Thyroid cancer [Recovering/Resolving]
  - Rheumatoid arthritis [Recovering/Resolving]
  - Fall [Recovering/Resolving]
  - Adverse drug reaction [Recovering/Resolving]
  - Stevens-Johnson syndrome [Recovering/Resolving]
